FAERS Safety Report 6267046-2 (Version None)
Quarter: 2009Q3

REPORT INFORMATION
  Report Type: 
  Country: None (occurrence: None)
  Receive Date: 20090714
  Receipt Date: 20090408
  Transmission Date: 20100115
  Serious: No
  Sender: FDA-Public Use
  Company Number: US-BAYER-200918328NA

PATIENT
  Age: 20 Year
  Sex: Female
  Weight: 102 kg

DRUGS (1)
  1. MIRENA [Suspect]
     Indication: CONTRACEPTION
     Dosage: CONTINUOUS
     Route: 015
     Dates: start: 20090330

REACTIONS (3)
  - COITAL BLEEDING [None]
  - DYSPAREUNIA [None]
  - POST PROCEDURAL HAEMORRHAGE [None]
